FAERS Safety Report 13973075 (Version 2)
Quarter: 2017Q4

REPORT INFORMATION
  Report Type: Spontaneous
  Country: JP (occurrence: JP)
  Receive Date: 20170915
  Receipt Date: 20171204
  Transmission Date: 20180321
  Serious: Yes (Death, Other)
  Sender: FDA-Public Use
  Company Number: JP-BAYER-2017-172649

PATIENT
  Age: 93 Year
  Sex: Female
  Weight: 35.4 kg

DRUGS (2)
  1. PREDONINE [Concomitant]
     Active Substance: PREDNISOLONE
     Indication: ARTHRITIS
     Dosage: DAILY DOSE 2.5MG
     Route: 048
     Dates: start: 2008
  2. BAYASPIRIN 100 MG [Suspect]
     Active Substance: ASPIRIN
     Indication: CEREBROVASCULAR ACCIDENT PROPHYLAXIS
     Dosage: DAILY DOSE 1 DF
     Route: 048
     Dates: start: 201011

REACTIONS (6)
  - Irregular breathing [None]
  - Mydriasis [Fatal]
  - Brain oedema [None]
  - Putamen haemorrhage [Fatal]
  - Tachypnoea [None]
  - Pupillary reflex impaired [Fatal]

NARRATIVE: CASE EVENT DATE: 20120626
